FAERS Safety Report 17597077 (Version 1)
Quarter: 2020Q1

REPORT INFORMATION
  Report Type: Spontaneous
  Country: FR (occurrence: FR)
  Receive Date: 20200330
  Receipt Date: 20200330
  Transmission Date: 20200409
  Serious: Yes (Other)
  Sender: FDA-Public Use
  Company Number: FR-TEVA-2020-FR-1212448

PATIENT
  Age: 54 Year
  Sex: Female
  Weight: 63 kg

DRUGS (10)
  1. PLAQUENIL [Suspect]
     Active Substance: HYDROXYCHLOROQUINE SULFATE
     Indication: ANKYLOSING SPONDYLITIS
     Dosage: 1 DOSAGEFORM
     Route: 048
     Dates: end: 20200225
  2. IZALGI 500 MG/25 MG, GELULE [Concomitant]
     Active Substance: ACETAMINOPHEN\OPIUM
     Dosage: 500 MG/25 MG,
  3. CLOPIDOGREL (CHLORHYDRATE DE) [Concomitant]
     Active Substance: CLOPIDOGREL HYDROCHLORIDE
  4. RISEDRONATE MONOSODIQUE [Suspect]
     Active Substance: RISEDRONATE SODIUM
     Indication: PROPHYLAXIS
     Dosage: 35 MG
     Route: 048
     Dates: start: 201912
  5. ATORVASTATINE [Concomitant]
     Active Substance: ATORVASTATIN
  6. CORTANCYL 20 MG, COMPRIME [Suspect]
     Active Substance: PREDNISONE
     Indication: SARCOIDOSIS
     Route: 048
     Dates: start: 20191007
  7. DIFFU K, GELULE [Concomitant]
     Active Substance: POTASSIUM CHLORIDE
  8. PANTOPRAZOLE [Concomitant]
     Active Substance: PANTOPRAZOLE
  9. PROCORALAN 5 MG, COMPRIME PELLICULE [Concomitant]
     Active Substance: IVABRADINE HYDROCHLORIDE
  10. LEVOTHYROX 75 MICROGRAMMES, COMPRIME SECABLE [Concomitant]
     Active Substance: LEVOTHYROXINE SODIUM

REACTIONS (3)
  - Headache [Not Recovered/Not Resolved]
  - Palpitations [Not Recovered/Not Resolved]
  - Erythema [Recovered/Resolved]

NARRATIVE: CASE EVENT DATE: 201912
